FAERS Safety Report 9388810 (Version 1)
Quarter: 2013Q3

REPORT INFORMATION
  Report Type: Spontaneous
  Country: GB (occurrence: GB)
  Receive Date: 20130708
  Receipt Date: 20130708
  Transmission Date: 20140515
  Serious: Yes (Life-Threatening)
  Sender: FDA-Public Use
  Company Number: PHHY2013GB070582

PATIENT
  Sex: Male

DRUGS (1)
  1. BISOPROLOL [Suspect]

REACTIONS (1)
  - Cardiac disorder [Not Recovered/Not Resolved]
